FAERS Safety Report 8990061 (Version 1)
Quarter: 2012Q4

REPORT INFORMATION
  Report Type: 
  Country: US (occurrence: US)
  Receive Date: 20121228
  Receipt Date: 20121228
  Transmission Date: 20130627
  Serious: Yes (Hospitalization, Other)
  Sender: FDA-Public Use
  Company Number: US-UCBSA-073096

PATIENT
  Sex: Female

DRUGS (10)
  1. CIMZIA [Suspect]
     Indication: CROHN^S DISEASE
     Dates: start: 200808, end: 201003
  2. CIMZIA [Suspect]
     Indication: CROHN^S DISEASE
     Dates: start: 201102, end: 201107
  3. CIMZIA [Suspect]
     Indication: CROHN^S DISEASE
     Dates: start: 201107
  4. PREDNISONE [Concomitant]
     Indication: CROHN^S DISEASE
     Dates: start: 201102
  5. PREDNISONE [Concomitant]
     Indication: CROHN^S DISEASE
     Dosage: DAILY DOSE : 20 MG
     Dates: start: 201204
  6. LUPRON [Concomitant]
     Dates: start: 201003, end: 2010
  7. SEASONIQUE [Concomitant]
     Indication: CONTRACEPTION
     Dosage: ONE TABLET DAILY
     Dates: start: 201003
  8. B12 [Concomitant]
     Route: 030
  9. IRON [Concomitant]
     Indication: ANAEMIA
  10. ZOLOFT [Concomitant]
     Dosage: DAILY DOSE : 10 MG

REACTIONS (3)
  - Crohn^s disease [Unknown]
  - Endometriosis [Recovered/Resolved]
  - Drug ineffective [Unknown]
